FAERS Safety Report 6430922-1 (Version None)
Quarter: 2009Q4

REPORT INFORMATION
  Report Type: 
  Country: None (occurrence: None)
  Receive Date: 20091106
  Receipt Date: 20091026
  Transmission Date: 20100525
  Serious: Yes (Other)
  Sender: FDA-Public Use
  Company Number: TW-AVENTIS-200922182GDDC

PATIENT
  Age: 37 Year
  Sex: Female

DRUGS (6)
  1. TAXOTERE [Suspect]
     Dosage: DOSE: UNK
  2. EPIRUBICIN [Suspect]
     Dosage: DOSE: UNK
  3. CYCLOPHOSPHAMIDE [Suspect]
     Dosage: DOSE: UNK
  4. ZOLADEX [Suspect]
     Dosage: DOSE: UNK
  5. TAMOXIFEN CITRATE [Suspect]
     Dosage: DOSE: UNK
  6. ORAL ANTIDIABETICS [Concomitant]
     Route: 048
     Dates: start: 20070101

REACTIONS (3)
  - OSTEOMYELITIS [None]
  - OSTEONECROSIS [None]
  - SWELLING [None]
